FAERS Safety Report 8122034-6 (Version None)
Quarter: 2012Q1

REPORT INFORMATION
  Report Type: 
  Country: None (occurrence: None)
  Receive Date: 20120208
  Receipt Date: 20120130
  Transmission Date: 20120608
  Serious: Yes (Other)
  Sender: FDA-Public Use
  Company Number: RO-ROCHE-1035852

PATIENT

DRUGS (2)
  1. XELODA [Suspect]
     Indication: NEOPLASM MALIGNANT
     Dosage: 660 MG/MP DAILY
     Route: 048
  2. CISPLATIN [Suspect]
     Indication: NEOPLASM MALIGNANT
     Dosage: 20 MG/MP

REACTIONS (5)
  - NEUTROPENIA [None]
  - NAUSEA [None]
  - VOMITING [None]
  - MUCOSAL INFLAMMATION [None]
  - TOXICITY TO VARIOUS AGENTS [None]
